FAERS Safety Report 6741091-2 (Version None)
Quarter: 2010Q2

REPORT INFORMATION
  Report Type: 
  Country: None (occurrence: None)
  Receive Date: 20100526
  Receipt Date: 20100513
  Transmission Date: 20101027
  Serious: Yes (Other)
  Sender: FDA-Public Use
  Company Number: PHHY2010GB26676

PATIENT
  Sex: Female

DRUGS (4)
  1. IMATINIB [Suspect]
     Indication: GASTROINTESTINAL STROMAL TUMOUR
     Dosage: 400 MG/DAY
     Dates: start: 20060401
  2. IMATINIB [Suspect]
     Dosage: 800 MG/DAY
     Dates: start: 20081101, end: 20090601
  3. SUNITINIB MALATE [Suspect]
     Indication: GASTROINTESTINAL STROMAL TUMOUR
     Dosage: 50 MG
  4. SUNITINIB MALATE [Suspect]
     Dosage: 37.5 MG/DAY
     Dates: start: 20091201

REACTIONS (6)
  - FATIGUE [None]
  - GASTROINTESTINAL STROMAL TUMOUR [None]
  - HYPOTHYROIDISM [None]
  - MALIGNANT NEOPLASM PROGRESSION [None]
  - MUCOSAL INFLAMMATION [None]
  - PALMAR-PLANTAR ERYTHRODYSAESTHESIA SYNDROME [None]
